FAERS Safety Report 9425502 (Version 2)
Quarter: 2013Q3

REPORT INFORMATION
  Report Type: Spontaneous
  Country: FR (occurrence: FR)
  Receive Date: 20130729
  Receipt Date: 20130730
  Transmission Date: 20140515
  Serious: Yes (Death)
  Sender: FDA-Public Use
  Company Number: FR-ABBOTT-13P-056-1124729-00

PATIENT
  Age: 68 Year
  Sex: Male

DRUGS (4)
  1. NORVIR [Suspect]
     Indication: HIV INFECTION
     Route: 048
  2. EFFEXOR [Suspect]
     Indication: DEPRESSION
  3. PREZISTA [Suspect]
     Indication: HIV INFECTION
     Route: 048
  4. KIVEXA [Suspect]
     Indication: HIV INFECTION
     Route: 048

REACTIONS (2)
  - Long QT syndrome [Fatal]
  - Cardio-respiratory arrest [Fatal]
